FAERS Safety Report 16510624 (Version 1)
Quarter: 2019Q3

REPORT INFORMATION
  Report Type: Spontaneous
  Country: RU (occurrence: RU)
  Receive Date: 20190702
  Receipt Date: 20190702
  Transmission Date: 20191004
  Serious: Yes (Hospitalization, Other)
  Sender: FDA-Public Use
  Company Number: RU-ROCHE-2345072

PATIENT
  Age: 62 Year
  Sex: Female

DRUGS (7)
  1. ATEZOLIZUMAB. [Suspect]
     Active Substance: ATEZOLIZUMAB
     Dosage: 120 MG/M2 IN 1-3 DAYS
     Route: 065
     Dates: start: 20180831
  2. ATEZOLIZUMAB. [Suspect]
     Active Substance: ATEZOLIZUMAB
     Indication: NEUROENDOCRINE CARCINOMA
     Dosage: 1-3 DAYS
     Route: 065
     Dates: start: 20180810
  3. ATEZOLIZUMAB. [Suspect]
     Active Substance: ATEZOLIZUMAB
     Dosage: 120 MG/M2 IN 1-3 DAYS
     Route: 065
     Dates: start: 20180921
  4. ATEZOLIZUMAB. [Suspect]
     Active Substance: ATEZOLIZUMAB
     Indication: PRODUCT USED FOR UNKNOWN INDICATION
     Dosage: EVERY 21 DAYS
     Route: 042
     Dates: start: 20190507
  5. ATEZOLIZUMAB. [Suspect]
     Active Substance: ATEZOLIZUMAB
     Dosage: EVERY 21 DAYS
     Route: 042
     Dates: start: 20190528
  6. ATEZOLIZUMAB. [Suspect]
     Active Substance: ATEZOLIZUMAB
     Dosage: 120 MG/M2 IN 1-3 DAYS
     Route: 065
     Dates: start: 20181012
  7. CARBOPLATIN. [Suspect]
     Active Substance: CARBOPLATIN
     Indication: PRODUCT USED FOR UNKNOWN INDICATION
     Dosage: 600 MG AUC5 1 TIME IN 21 DAYS
     Route: 065

REACTIONS (14)
  - Asthenia [Unknown]
  - Decreased appetite [Unknown]
  - Lethargy [Unknown]
  - Herpes virus infection [Unknown]
  - Pyrexia [Unknown]
  - Muscular weakness [Unknown]
  - Malaise [Unknown]
  - Epigastric discomfort [Unknown]
  - Pyoderma [Unknown]
  - Neutropenia [Unknown]
  - Respiratory tract infection viral [Unknown]
  - Upper respiratory tract congestion [Unknown]
  - Productive cough [Unknown]
  - Dyspepsia [Unknown]

NARRATIVE: CASE EVENT DATE: 201811
